FAERS Safety Report 17910518 (Version 1)
Quarter: 2020Q2

REPORT INFORMATION
  Report Type: Report from Study
  Country: US (occurrence: US)
  Receive Date: 20200618
  Receipt Date: 20200618
  Transmission Date: 20200714
  Serious: Yes (Hospitalization, Other)
  Sender: FDA-Public Use
  Company Number: US-BRISTOL-MYERS SQUIBB COMPANY-BMS-2020-048122

PATIENT
  Age: 53 Year
  Sex: Male
  Weight: 77.9 kg

DRUGS (2)
  1. IPILIMUMAB [Suspect]
     Active Substance: IPILIMUMAB
     Indication: MENINGIOMA
     Dosage: 3 MILLIGRAM/KILOGRAM
     Route: 042
     Dates: start: 20200603, end: 20200603
  2. NIVOLUMAB [Suspect]
     Active Substance: NIVOLUMAB
     Indication: MENINGIOMA
     Dosage: 1 MILLIGRAM/KILOGRAM, Q3WK
     Route: 042
     Dates: start: 20200603, end: 20200603

REACTIONS (6)
  - Dyspnoea [Unknown]
  - Troponin T increased [Unknown]
  - Aspartate aminotransferase increased [Unknown]
  - Sinus tachycardia [Unknown]
  - Alanine aminotransferase increased [Unknown]
  - Hyperthyroidism [Unknown]

NARRATIVE: CASE EVENT DATE: 20200612
